FAERS Safety Report 5659528-9 (Version None)
Quarter: 2008Q1

REPORT INFORMATION
  Report Type: 
  Country: None (occurrence: None)
  Receive Date: 20080311
  Receipt Date: 20080304
  Transmission Date: 20080703
  Serious: Yes (Other)
  Sender: FDA-Public Use
  Company Number: PHFR2008GB01036

PATIENT
  Age: 41 Year
  Sex: Female
  Weight: 76 kg

DRUGS (4)
  1. ZOLEDRONIC ACID [Suspect]
     Dosage: 5 MG/DAY
     Dates: start: 20080228, end: 20080228
  2. HYDROCORTISONE [Concomitant]
     Route: 065
  3. LEVOTHYROXINE SODIUM [Concomitant]
     Route: 065
  4. GENOTROPIN [Concomitant]
     Route: 065

REACTIONS (6)
  - ARTHRALGIA [None]
  - BLOOD CALCIUM DECREASED [None]
  - FATIGUE [None]
  - JOINT SWELLING [None]
  - MALAISE [None]
  - NAUSEA [None]
